FAERS Safety Report 16464995 (Version 1)
Quarter: 2019Q2

REPORT INFORMATION
  Report Type: Spontaneous
  Country: US (occurrence: US)
  Receive Date: 20190621
  Receipt Date: 20190621
  Transmission Date: 20190711
  Serious: No
  Sender: FDA-Public Use
  Company Number: US-GE HEALTHCARE LIFE SCIENCES-2019CSU001643

PATIENT
  Age: 49 Year
  Sex: Male

DRUGS (9)
  1. OMNIPAQUE [Suspect]
     Active Substance: IOHEXOL
     Indication: COMPUTERISED TOMOGRAM ABDOMEN
     Dosage: 100 ML, SINGLE
     Route: 042
     Dates: start: 20190315, end: 20190315
  2. PROPECIA [Concomitant]
     Active Substance: FINASTERIDE
  3. LOPID [Concomitant]
     Active Substance: GEMFIBROZIL
  4. OMNIPAQUE [Suspect]
     Active Substance: IOHEXOL
     Indication: COMPUTERISED TOMOGRAM PELVIS
  5. NEURONTIN [Concomitant]
     Active Substance: GABAPENTIN
  6. PRILOSEC [Concomitant]
     Active Substance: OMEPRAZOLE MAGNESIUM
  7. MAGNESIUM SULPHATE [Concomitant]
     Active Substance: MAGNESIUM SULFATE
  8. MULTIVITAMIN [Concomitant]
     Active Substance: VITAMINS
  9. OMNIPAQUE [Suspect]
     Active Substance: IOHEXOL
     Indication: GASTRITIS

REACTIONS (2)
  - Urticaria [Recovering/Resolving]
  - Pruritus [Recovering/Resolving]

NARRATIVE: CASE EVENT DATE: 20190315
